FAERS Safety Report 16100556 (Version 1)
Quarter: 2019Q1

REPORT INFORMATION
  Report Type: Spontaneous
  Country: GB (occurrence: GB)
  Receive Date: 20190321
  Receipt Date: 20190321
  Transmission Date: 20190418
  Serious: Yes (Hospitalization)
  Sender: FDA-Public Use
  Company Number: GB-MYLANLABS-2019M1025578

PATIENT
  Age: 79 Year
  Sex: Male
  Weight: 65 kg

DRUGS (16)
  1. DERMOL                             /01330701/ [Concomitant]
     Dosage: UNK
  2. RAMIPRIL. [Concomitant]
     Active Substance: RAMIPRIL
     Dosage: UNK
     Dates: start: 20180530, end: 20180705
  3. FUROSEMIDE. [Concomitant]
     Active Substance: FUROSEMIDE
     Dosage: UNK
     Dates: start: 201402
  4. PROPECIA [Concomitant]
     Active Substance: FINASTERIDE
     Dosage: UNK
     Dates: start: 2003
  5. ATORVASTATIN [Concomitant]
     Active Substance: ATORVASTATIN
     Dosage: UNK
     Dates: start: 201506
  6. BISOPROLOL [Concomitant]
     Active Substance: BISOPROLOL
     Dosage: UNK
     Dates: start: 201402
  7. FOLIC ACID. [Concomitant]
     Active Substance: FOLIC ACID
     Dosage: UNK
     Dates: start: 201711
  8. SALBUTAMOL [Concomitant]
     Active Substance: ALBUTEROL
     Dosage: UNK
     Dates: start: 201708
  9. UREA. [Concomitant]
     Active Substance: UREA
     Dosage: UNK
     Dates: start: 20180620
  10. SPIRIVA [Concomitant]
     Active Substance: TIOTROPIUM BROMIDE MONOHYDRATE
     Dosage: UNK
     Dates: start: 201712
  11. APIXABAN [Concomitant]
     Active Substance: APIXABAN
     Dosage: UNK
     Dates: start: 201505
  12. CASSIA ACUTIFOLIA [Concomitant]
     Dosage: UNK
     Dates: start: 200906
  13. LOSARTAN. [Suspect]
     Active Substance: LOSARTAN
     Indication: HYPERTENSION
     Dosage: 25 MILLIGRAM, QD
     Dates: start: 20180612, end: 20180731
  14. FEXOFENADINE [Concomitant]
     Active Substance: FEXOFENADINE\FEXOFENADINE HYDROCHLORIDE
     Dosage: UNK
     Dates: start: 20180620
  15. FLUTICASONE W/SALMETEROL [Concomitant]
     Active Substance: FLUTICASONE PROPIONATE\SALMETEROL XINAFOATE
     Dosage: UNK
     Dates: start: 201207
  16. CLOBETASONE [Concomitant]
     Active Substance: CLOBETASONE
     Indication: RASH
     Dosage: UNK
     Dates: start: 20180712

REACTIONS (3)
  - Hypotension [Recovered/Resolved]
  - Vasculitic rash [Recovering/Resolving]
  - Acute kidney injury [Recovered/Resolved]

NARRATIVE: CASE EVENT DATE: 20180727
